FAERS Safety Report 13660122 (Version 1)
Quarter: 2017Q2

REPORT INFORMATION
  Report Type: Spontaneous
  Country: JP (occurrence: JP)
  Receive Date: 20170616
  Receipt Date: 20170616
  Transmission Date: 20170830
  Serious: Yes (Other)
  Sender: FDA-Public Use
  Company Number: JP-BAYER-2017-112670

PATIENT
  Age: 7 Year
  Sex: Male

DRUGS (4)
  1. CEFOTAXIME SODIUM [Suspect]
     Active Substance: CEFOTAXIME SODIUM
  2. PABLON S [Suspect]
     Active Substance: ACETAMINOPHEN\BROMHEXINE\CAFFEINE\CARBINOXAMINE\DIHYDROCODEINE PHOSPHATE\LYSOZYME HYDROCHLORIDE\METHYLEPHEDRINE HYDROCHLORIDE, (+/-)-\SULBUTIAMINE
     Route: 048
  3. ACETAMINOPHEN. [Suspect]
     Active Substance: ACETAMINOPHEN
  4. ACETYLSALICYLIC ACID({=100 MG) [Suspect]
     Active Substance: ASPIRIN
     Route: 048

REACTIONS (1)
  - Acute generalised exanthematous pustulosis [Recovering/Resolving]
